FAERS Safety Report 9666023 (Version 1)
Quarter: 2013Q4

REPORT INFORMATION
  Report Type: Spontaneous
  Country: BR (occurrence: BR)
  Receive Date: 20131104
  Receipt Date: 20131104
  Transmission Date: 20140711
  Serious: Yes (Hospitalization)
  Sender: FDA-Public Use
  Company Number: BR-SA-2013SA109958

PATIENT
  Age: 75 Year
  Sex: Female
  Weight: 54 kg

DRUGS (5)
  1. LANTUS [Suspect]
     Indication: DIABETES MELLITUS
     Route: 058
  2. APIDRA SOLOSTAR [Suspect]
     Indication: DIABETES MELLITUS
     Route: 058
     Dates: start: 20131024
  3. SOLOSTAR [Concomitant]
     Indication: DEVICE THERAPY
  4. VITAMIN D [Concomitant]
     Indication: OSTEOPOROSIS PROPHYLAXIS
     Route: 048
  5. BENERVA [Concomitant]
     Indication: MUSCLE CONTRACTURE
     Route: 048

REACTIONS (11)
  - Blood potassium increased [Recovering/Resolving]
  - Hyperglycaemia [Recovering/Resolving]
  - Pain in extremity [Recovering/Resolving]
  - Asthenia [Recovering/Resolving]
  - Malaise [Recovering/Resolving]
  - Dizziness [Recovering/Resolving]
  - Hypoglycaemia [Recovering/Resolving]
  - Hyperglycaemia [Recovering/Resolving]
  - Arthralgia [Recovering/Resolving]
  - Muscle rigidity [Recovering/Resolving]
  - Dizziness [Recovering/Resolving]
